FAERS Safety Report 5711574-2 (Version None)
Quarter: 2008Q2

REPORT INFORMATION
  Report Type: 
  Country: None (occurrence: None)
  Receive Date: 20080421
  Receipt Date: 20080407
  Transmission Date: 20081010
  Serious: Yes (Other)
  Sender: FDA-Public Use
  Company Number: GR-BRISTOL-MYERS SQUIBB COMPANY-14150783

PATIENT
  Age: 51 Year
  Sex: Female

DRUGS (8)
  1. CYCLOPHOSPHAMIDE [Suspect]
     Indication: BREAST CANCER
     Dosage: CYCLE 5 ADMINISTERED ON 24-JAN-2008
     Route: 042
     Dates: start: 20080103, end: 20080103
  2. METHOTREXATE [Suspect]
     Indication: BREAST CANCER
     Dosage: CYCLE 5 ADMINISTERED ON 24-JAN-2008
     Route: 042
     Dates: start: 20080103, end: 20080103
  3. FLUOROURACIL [Suspect]
     Indication: BREAST CANCER
     Dosage: CYCLE 5 ADMINISTERED ON 24-JAN-2008
     Route: 042
     Dates: start: 20080103, end: 20080103
  4. ZOFRAN [Concomitant]
  5. ZANTAC [Concomitant]
  6. FENISTIL [Concomitant]
  7. DEXAMETHASONE TAB [Concomitant]
  8. NEULASTA [Concomitant]

REACTIONS (2)
  - NEUTROPENIA [None]
  - RASH [None]
